FAERS Safety Report 7417530-0 (Version None)
Quarter: 2011Q2

REPORT INFORMATION
  Report Type: 
  Country: None (occurrence: None)
  Receive Date: 20110412
  Receipt Date: 20110412
  Transmission Date: 20111010
  Serious: No
  Sender: FDA-Public Use
  Company Number: None

PATIENT
  Age: 72 Year
  Sex: Female
  Weight: 58.0604 kg

DRUGS (2)
  1. DOXYCYCLINE HYCLATE [Suspect]
     Indication: PERIODONTAL DISEASE
     Dosage: 2 TABLETS 1ST DAY 1 TABLET ONCE  DAILY
     Dates: start: 20110322
  2. DOXYCYCLINE HYCLATE [Suspect]
     Indication: PERIODONTAL DISEASE
     Dosage: 2 TABLETS 1ST DAY 1 TABLET ONCE  DAILY
     Dates: start: 20110321

REACTIONS (6)
  - MENTAL IMPAIRMENT [None]
  - ARTHRALGIA [None]
  - NAUSEA [None]
  - HEADACHE [None]
  - VISUAL IMPAIRMENT [None]
  - FATIGUE [None]
